FAERS Safety Report 12397185 (Version 1)
Quarter: 2016Q2

REPORT INFORMATION
  Report Type: Spontaneous
  Country: US (occurrence: None)
  Receive Date: 20160523
  Receipt Date: 20160523
  Transmission Date: 20160815
  Serious: Yes (Other)
  Sender: FDA-Public Use
  Company Number: None

PATIENT
  Age: 18 Year
  Sex: Female
  Weight: 45.36 kg

DRUGS (4)
  1. VAYARIN [Concomitant]
     Active Substance: DOCONEXENT\ICOSAPENT\PHOSPHATIDYL SERINE
  2. EVEKEO [Suspect]
     Active Substance: AMPHETAMINE SULFATE
     Indication: ATTENTION DEFICIT/HYPERACTIVITY DISORDER
     Dosage: 1 TABLET(S) ONCE A DAY TAKEN BY MOUTH
     Route: 048
     Dates: start: 20160519, end: 20160519
  3. PROZAC [Concomitant]
     Active Substance: FLUOXETINE HYDROCHLORIDE
  4. LIPIRINEN [Concomitant]

REACTIONS (17)
  - Diplopia [None]
  - Loss of consciousness [None]
  - Dyskinesia [None]
  - Blood pressure decreased [None]
  - Seizure [None]
  - Confusional state [None]
  - Disorientation [None]
  - Neck pain [None]
  - Balance disorder [None]
  - Dizziness [None]
  - Nausea [None]
  - Pallor [None]
  - Somnolence [None]
  - Foaming at mouth [None]
  - Wrong drug administered [None]
  - Memory impairment [None]
  - Musculoskeletal stiffness [None]

NARRATIVE: CASE EVENT DATE: 20160519
